FAERS Safety Report 9306377 (Version 2)
Quarter: 2013Q1

REPORT INFORMATION
  Report Type: Spontaneous
  Country: US (occurrence: None)
  Receive Date: 20130307
  Receipt Date: 20130322
  Transmission Date: 20140127
  Serious: Yes (Congenital Anomaly)
  Sender: FDA-Public Use
  Company Number: ADR-2013UNK020

PATIENT
  Age: 280 Day
  Sex: Female
  Weight: 2.88 kg

DRUGS (7)
  1. LAMIVUDINE AND ZIDOVUDINE [Suspect]
     Indication: ACQUIRED IMMUNODEFICIENCY SYNDROME
     Route: 048
     Dates: start: 20120521
  2. EFAVIRENZ [Suspect]
     Indication: ACQUIRED IMMUNODEFICIENCY SYNDROME
     Route: 048
     Dates: start: 20120611
  3. TRUVADA [Concomitant]
  4. LAMIVUDINE [Concomitant]
  5. LEXIVA [Concomitant]
  6. ABACAVIR [Concomitant]
  7. RALTEGRAVIR [Concomitant]

REACTIONS (5)
  - Maternal exposure during pregnancy [None]
  - Muscle disorder [None]
  - Genital prolapse [None]
  - Maternal drugs affecting foetus [None]
  - Congenital anomaly [None]
